FAERS Safety Report 5763109-6 (Version None)
Quarter: 2008Q2

REPORT INFORMATION
  Report Type: 
  Country: None (occurrence: None)
  Receive Date: 20080609
  Receipt Date: 20080528
  Transmission Date: 20081010
  Serious: Yes (Death)
  Sender: FDA-Public Use
  Company Number: ES-PFIZER INC-2008045158

PATIENT
  Age: 78 Year
  Sex: Female

DRUGS (5)
  1. ALDACTONE [Suspect]
     Indication: HYPERTENSION
     Route: 048
  2. ENALAPRIL MALEATE [Interacting]
     Indication: HYPERTENSION
     Route: 048
  3. FUROSEMIDE [Interacting]
     Indication: HYPERTENSION
     Route: 048
  4. COROPRES [Interacting]
     Indication: HYPERTENSION
     Route: 048
     Dates: start: 20071128, end: 20080128
  5. SINTROM [Concomitant]
     Route: 048

REACTIONS (2)
  - DRUG INTERACTION [None]
  - RENAL FAILURE ACUTE [None]
